FAERS Safety Report 5733778-5 (Version None)
Quarter: 2008Q2

REPORT INFORMATION
  Report Type: 
  Country: None (occurrence: None)
  Receive Date: 20080509
  Receipt Date: 20080502
  Transmission Date: 20081010
  Serious: Yes (Life-Threatening, Hospitalization)
  Sender: FDA-Public Use
  Company Number: FR-PFIZER INC-2008019280

PATIENT
  Sex: Male

DRUGS (12)
  1. SALAZOPYRIN [Suspect]
     Indication: PSORIASIS
  2. METHOTREXATE [Suspect]
     Indication: PSORIASIS
  3. ETANERCEPT [Suspect]
     Indication: PSORIATIC ARTHROPATHY
     Route: 058
     Dates: start: 20040101, end: 20060315
  4. ETANERCEPT [Suspect]
     Indication: PSORIASIS
  5. EFALIZUMAB [Concomitant]
     Indication: PSORIASIS
  6. CYCLOSPORINE [Concomitant]
     Indication: PSORIASIS
  7. FUROSEMIDE [Concomitant]
     Route: 048
  8. MONO-TILDIEM - SLOW RELEASE [Concomitant]
     Route: 048
  9. ADANCOR [Concomitant]
     Route: 048
  10. CLOPIDOGREL [Concomitant]
     Route: 048
  11. PERINDOPRIL ERBUMINE [Concomitant]
     Route: 048
  12. ELISOR [Concomitant]
     Route: 048

REACTIONS (2)
  - PENIS CARCINOMA [None]
  - SCROTAL CANCER [None]
